FAERS Safety Report 5521813-9 (Version None)
Quarter: 2007Q4

REPORT INFORMATION
  Report Type: 
  Country: None (occurrence: None)
  Receive Date: 20071120
  Receipt Date: 20070726
  Transmission Date: 20080405
  Serious: No
  Sender: FDA-Public Use
  Company Number: A0666526A

PATIENT
  Sex: Female

DRUGS (1)
  1. LANOXIN [Suspect]
     Indication: CARDIAC FAILURE
     Route: 048

REACTIONS (1)
  - DRUG DISPENSING ERROR [None]
